FAERS Safety Report 8797744 (Version 2)
Quarter: 2012Q4

REPORT INFORMATION
  Report Type: 
  Country: JP (occurrence: JP)
  Receive Date: 20120920
  Receipt Date: 20121218
  Transmission Date: 20130627
  Serious: Yes (Hospitalization)
  Sender: FDA-Public Use
  Company Number: JP-GE HEALTHCARE MEDICAL DIAGNOSTICS-OMPQ-NO-1209S-0958

PATIENT
  Age: 56 Year
  Sex: Female

DRUGS (1)
  1. OMNIPAQUE [Suspect]
     Indication: PRODUCT USED FOR UNKNOWN INDICATION
     Dosage: dose not reported
     Route: 042
     Dates: start: 20110517, end: 20110517

REACTIONS (1)
  - Toxic skin eruption [Recovered/Resolved]
